FAERS Safety Report 13273077 (Version 1)
Quarter: 2017Q1

REPORT INFORMATION
  Report Type: Spontaneous
  Country: US (occurrence: US)
  Receive Date: 20170227
  Receipt Date: 20170227
  Transmission Date: 20170428
  Serious: Yes (Death, Hospitalization)
  Sender: FDA-Public Use
  Company Number: None

PATIENT
  Age: 27 Year
  Sex: Male
  Weight: 83.99 kg

DRUGS (1)
  1. FENTANYL. [Suspect]
     Active Substance: FENTANYL

REACTIONS (2)
  - Self-medication [None]
  - Withdrawal syndrome [None]

NARRATIVE: CASE EVENT DATE: 20160118
